FAERS Safety Report 8159064 (Version 3)
Quarter: 2015Q2

REPORT INFORMATION
  Report Type: Spontaneous
  Country: US (occurrence: US)
  Receive Date: 20110927
  Receipt Date: 20150512
  Transmission Date: 20150821
  Serious: Yes (Hospitalization, Congenital Anomaly)
  Sender: FDA-Public Use
  Company Number: US-ELI_LILLY_AND_COMPANY-US201109004211

PATIENT
  Sex: Female

DRUGS (4)
  1. PROGESTERONE. [Concomitant]
     Active Substance: PROGESTERONE
     Route: 064
  2. PROZAC [Suspect]
     Active Substance: FLUOXETINE HYDROCHLORIDE
     Indication: DEPRESSION
     Dosage: 20 MG, QD
     Route: 064
  3. PROZAC [Suspect]
     Active Substance: FLUOXETINE HYDROCHLORIDE
     Indication: DEPRESSION
     Dosage: 20 MG, QD
     Route: 064
  4. PROGESTERONE. [Concomitant]
     Active Substance: PROGESTERONE
     Route: 064

REACTIONS (6)
  - Body height below normal [Unknown]
  - Anal atresia [Unknown]
  - Asthma [Unknown]
  - Foetal exposure during pregnancy [Recovered/Resolved]
  - Tethered cord syndrome [Unknown]
  - Asperger^s disorder [Unknown]
